FAERS Safety Report 24076022 (Version 6)
Quarter: 2025Q2

REPORT INFORMATION
  Report Type: Report from Study
  Country: GB (occurrence: GB)
  Receive Date: 20240710
  Receipt Date: 20250623
  Transmission Date: 20250717
  Serious: Yes (Hospitalization, Other)
  Sender: TAKEDA
  Company Number: GB-TAKEDA-2023TUS118603

PATIENT
  Age: 81 Year
  Sex: Male

DRUGS (2)
  1. VEDOLIZUMAB [Suspect]
     Active Substance: VEDOLIZUMAB
     Indication: Colitis ulcerative
     Dosage: 108 MILLIGRAM, Q2WEEKS
  2. VEDOLIZUMAB [Suspect]
     Active Substance: VEDOLIZUMAB

REACTIONS (7)
  - Hip fracture [Unknown]
  - Urinary tract infection [Unknown]
  - Foot fracture [Unknown]
  - Fall [Unknown]
  - Contusion [Unknown]
  - Inappropriate schedule of product administration [Unknown]
  - Malaise [Unknown]

NARRATIVE: CASE EVENT DATE: 20231122
